FAERS Safety Report 16193556 (Version 1)
Quarter: 2019Q2

REPORT INFORMATION
  Report Type: Spontaneous
  Country: DE (occurrence: DE)
  Receive Date: 20190413
  Receipt Date: 20190413
  Transmission Date: 20190711
  Serious: Yes (Hospitalization)
  Sender: FDA-Public Use
  Company Number: DE-AMGEN-DEUSP2019055521

PATIENT
  Age: 73 Year
  Sex: Female

DRUGS (3)
  1. REPATHA [Suspect]
     Active Substance: EVOLOCUMAB
     Indication: HYPERCHOLESTEROLAEMIA
     Dosage: DAILY DOSE: 140 MG MILLGRAM(S) EVERY 2 WEEKS
     Route: 058
     Dates: start: 201902, end: 201903
  2. EZETIMIBE. [Concomitant]
     Active Substance: EZETIMIBE
  3. EZETROL [Concomitant]
     Active Substance: EZETIMIBE

REACTIONS (5)
  - Cardiac discomfort [Recovered/Resolved]
  - Weight increased [Not Recovered/Not Resolved]
  - Bone pain [Not Recovered/Not Resolved]
  - Blood pressure increased [Recovered/Resolved]
  - Nausea [Recovered/Resolved]

NARRATIVE: CASE EVENT DATE: 201902
